FAERS Safety Report 10929845 (Version 1)
Quarter: 2015Q1

REPORT INFORMATION
  Report Type: Spontaneous
  Country: JP (occurrence: JP)
  Receive Date: 20150319
  Receipt Date: 20150319
  Transmission Date: 20150721
  Serious: Yes (Hospitalization)
  Sender: FDA-Public Use
  Company Number: JP-NOVOPROD-442210

PATIENT
  Age: 80 Year
  Sex: Male

DRUGS (4)
  1. TRAZENTA [Concomitant]
     Active Substance: LINAGLIPTIN
     Route: 048
  2. SUREPOST [Suspect]
     Active Substance: REPAGLINIDE
     Indication: DIABETES MELLITUS
     Dosage: 0.75 MG, QD
     Route: 048
     Dates: start: 20150227
  3. FEBURIC [Concomitant]
     Active Substance: FEBUXOSTAT
     Route: 048
  4. LASIX [Concomitant]
     Active Substance: FUROSEMIDE

REACTIONS (1)
  - Cardiac failure congestive [Unknown]

NARRATIVE: CASE EVENT DATE: 201503
